FAERS Safety Report 9067777 (Version 1)
Quarter: 2013Q1

REPORT INFORMATION
  Report Type: Spontaneous
  Country: US (occurrence: US)
  Receive Date: 20130128
  Receipt Date: 20130128
  Transmission Date: 20140127
  Serious: Yes (Hospitalization, Other)
  Sender: FDA-Public Use
  Company Number: US-WATSON-2013-00629

PATIENT
  Age: 65 Year
  Sex: Female

DRUGS (4)
  1. METFORMIN HYDROCHLORIDE (WATSON LABORATORIES) [Suspect]
     Indication: PRODUCT USED FOR UNKNOWN INDICATION
     Dosage: UNK, UNKNOWN
     Route: 065
     Dates: start: 2012
  2. INSULIN GLARGINE [Suspect]
     Indication: TYPE 2 DIABETES MELLITUS
     Dosage: 30 UNITS IN THE MORNING AND 35 UNITS IN THE EVENING
     Route: 065
     Dates: start: 2007
  3. LETROZOLE [Concomitant]
     Indication: PRODUCT USED FOR UNKNOWN INDICATION
     Dosage: UNK, UNKNOWN
     Route: 065
  4. STEROID ANTIBACTERIALS [Concomitant]
     Indication: PRODUCT USED FOR UNKNOWN INDICATION
     Dosage: UNK, UNKNOWN
     Route: 065
     Dates: end: 201203

REACTIONS (4)
  - Renal failure [Unknown]
  - Breast cancer [Unknown]
  - Dehydration [Recovered/Resolved]
  - Blood glucose increased [Unknown]
